FAERS Safety Report 17065927 (Version 2)
Quarter: 2021Q1

REPORT INFORMATION
  Report Type: Spontaneous
  Country: US (occurrence: US)
  Receive Date: 20191122
  Receipt Date: 20210112
  Transmission Date: 20210419
  Serious: Yes (Other)
  Sender: FDA-Public Use
  Company Number: US-BAYER-2019-208538

PATIENT
  Age: 29 Year
  Sex: Female

DRUGS (4)
  1. MACROGOL 3350 [Suspect]
     Active Substance: POLYETHYLENE GLYCOL 3350
     Indication: ABDOMINAL PAIN
     Dosage: UNK
  2. NIFEDIPINE. [Interacting]
     Active Substance: NIFEDIPINE
     Indication: PRODUCT USED FOR UNKNOWN INDICATION
     Dosage: UNK
  3. MAGNESIUM HYDROXIDE. [Interacting]
     Active Substance: MAGNESIUM HYDROXIDE
     Indication: ABDOMINAL PAIN
     Dosage: UNK
  4. LABETALOL [Concomitant]
     Active Substance: LABETALOL\LABETALOL HYDROCHLORIDE

REACTIONS (6)
  - Product use in unapproved indication [None]
  - Renal failure [None]
  - Maternal exposure during pregnancy [None]
  - Off label use [None]
  - Cardiotoxicity [None]
  - Toxicity to various agents [None]
